FAERS Safety Report 17515418 (Version 3)
Quarter: 2020Q3

REPORT INFORMATION
  Report Type: Spontaneous
  Country: US (occurrence: US)
  Receive Date: 20200309
  Receipt Date: 20200703
  Transmission Date: 20201102
  Serious: No
  Sender: FDA-Public Use
  Company Number: US-SAGE-2020SAGE000016

PATIENT

DRUGS (1)
  1. ZULRESSO [Suspect]
     Active Substance: BREXANOLONE
     Indication: PERINATAL DEPRESSION
     Dosage: UNK
     Route: 042
     Dates: start: 20200211

REACTIONS (3)
  - Perinatal depression [Recovering/Resolving]
  - Anxiety [Recovering/Resolving]
  - Therapeutic product effect incomplete [Recovering/Resolving]
